FAERS Safety Report 7499373-5 (Version None)
Quarter: 2011Q2

REPORT INFORMATION
  Report Type: 
  Country: None (occurrence: None)
  Receive Date: 20110524
  Receipt Date: 20110519
  Transmission Date: 20111010
  Serious: Yes (Hospitalization, Other)
  Sender: FDA-Public Use
  Company Number: US-TEVA-282435USA

PATIENT
  Sex: Female
  Weight: 57.658 kg

DRUGS (2)
  1. INTERFERON BETA-1A [Suspect]
     Indication: MULTIPLE SCLEROSIS
     Dates: start: 20070508, end: 20090324
  2. COPAXONE [Suspect]
     Indication: MULTIPLE SCLEROSIS
     Route: 058
     Dates: start: 20051001

REACTIONS (1)
  - BREAST CANCER STAGE III [None]
